FAERS Safety Report 9729691 (Version 1)
Quarter: 2013Q4

REPORT INFORMATION
  Report Type: Spontaneous
  Country: US (occurrence: US)
  Receive Date: 20131204
  Receipt Date: 20131204
  Transmission Date: 20140711
  Serious: No
  Sender: FDA-Public Use
  Company Number: US-GILEAD-2009-0020954

PATIENT
  Age: 55 Year
  Sex: Female

DRUGS (13)
  1. LETAIRIS [Suspect]
     Indication: PULMONARY ARTERIAL HYPERTENSION
     Route: 048
     Dates: start: 20080201
  2. REVATIO [Concomitant]
  3. FUROSEMIDE [Concomitant]
  4. POTASSIUM [Concomitant]
  5. MECLIZINE [Concomitant]
  6. TOPAMAX [Concomitant]
  7. SALSALATE [Concomitant]
  8. DARVON [Concomitant]
  9. SOMA [Concomitant]
  10. KLONOPIN [Concomitant]
  11. TRAZODONE [Concomitant]
  12. EFFEXOR [Concomitant]
  13. MULTIVITS [Concomitant]

REACTIONS (1)
  - Rash [Not Recovered/Not Resolved]
